FAERS Safety Report 14189477 (Version 1)
Quarter: 2017Q4

REPORT INFORMATION
  Report Type: Spontaneous
  Country: GB (occurrence: GB)
  Receive Date: 20171115
  Receipt Date: 20171115
  Transmission Date: 20180321
  Serious: Yes (Other)
  Sender: FDA-Public Use
  Company Number: GB-ROCHE-2023790

PATIENT
  Age: 29 Year
  Sex: Female

DRUGS (5)
  1. ACTILYSE [Suspect]
     Active Substance: ALTEPLASE
     Indication: CEREBRAL VENOUS THROMBOSIS
  2. HEPARIN [Concomitant]
     Active Substance: HEPARIN SODIUM
     Indication: INTRACRANIAL VENOUS SINUS THROMBOSIS
     Route: 042
  3. HEPARIN [Concomitant]
     Active Substance: HEPARIN SODIUM
     Indication: INTRACRANIAL VENOUS SINUS THROMBOSIS
     Route: 042
  4. FRAGMIN [Concomitant]
     Active Substance: DALTEPARIN SODIUM
     Indication: INTRACRANIAL VENOUS SINUS THROMBOSIS
     Dosage: 5000 UNITS
     Route: 058
  5. ACTILYSE [Suspect]
     Active Substance: ALTEPLASE
     Indication: INTRACRANIAL VENOUS SINUS THROMBOSIS
     Route: 065

REACTIONS (2)
  - Intracranial venous sinus thrombosis [Recovered/Resolved]
  - Maternal exposure during pregnancy [Unknown]
